FAERS Safety Report 5333179-8 (Version None)
Quarter: 2007Q2

REPORT INFORMATION
  Report Type: 
  Country: None (occurrence: None)
  Receive Date: 20070524
  Receipt Date: 20070514
  Transmission Date: 20071010
  Serious: Yes (Other)
  Sender: FDA-Public Use
  Company Number: PHRM2007FR01452

PATIENT
  Sex: Female

DRUGS (1)
  1. METOPIRONE [Suspect]
     Indication: CUSHING'S SYNDROME
     Route: 048
     Dates: start: 20070511

REACTIONS (3)
  - COAGULOPATHY [None]
  - INTERNATIONAL NORMALISED RATIO INCREASED [None]
  - LIVER DISORDER [None]
